FAERS Safety Report 5921894-4 (Version None)
Quarter: 2008Q4

REPORT INFORMATION
  Report Type: 
  Country: None (occurrence: None)
  Receive Date: 20081017
  Receipt Date: 20081007
  Transmission Date: 20090506
  Serious: Yes (Hospitalization)
  Sender: FDA-Public Use
  Company Number: US-AMGEN-US305806

PATIENT
  Sex: Female

DRUGS (4)
  1. ENBREL [Suspect]
     Indication: RHEUMATOID ARTHRITIS
     Route: 058
     Dates: start: 20030101, end: 20050801
  2. METHOTREXATE [Concomitant]
     Route: 048
     Dates: start: 20031001, end: 20050801
  3. FOSAMAX [Concomitant]
     Route: 065
     Dates: start: 20030101
  4. FOLIC ACID [Concomitant]
     Route: 065
     Dates: start: 20031023

REACTIONS (1)
  - LISTERIOSIS [None]
